FAERS Safety Report 7092245-X (Version None)
Quarter: 2010Q4

REPORT INFORMATION
  Report Type: 
  Country: None (occurrence: None)
  Receive Date: 20101109
  Receipt Date: 20101031
  Transmission Date: 20110411
  Serious: Yes (Hospitalization)
  Sender: FDA-Public Use
  Company Number: US-ABBOTT-10P-163-0682538-00

PATIENT
  Sex: Female
  Weight: 99.88 kg

DRUGS (8)
  1. HUMIRA [Suspect]
     Indication: PSORIATIC ARTHROPATHY
     Dates: start: 20090101, end: 20100801
  2. HUMIRA [Suspect]
     Indication: COLITIS ULCERATIVE
  3. METHOTREXATE [Concomitant]
     Indication: PSORIATIC ARTHROPATHY
  4. PLAQUENIL [Concomitant]
     Indication: PSORIATIC ARTHROPATHY
  5. SULFASALAZINE [Concomitant]
     Indication: PSORIATIC ARTHROPATHY
  6. WARFARIN [Concomitant]
     Indication: FACTOR V LEIDEN MUTATION
  7. LEXAPRO [Concomitant]
     Indication: DEPRESSION
  8. PROVIGIL [Concomitant]
     Indication: SOMNOLENCE

REACTIONS (7)
  - FATIGUE [None]
  - HYPOAESTHESIA [None]
  - MYOPATHY [None]
  - PAIN [None]
  - PARAESTHESIA [None]
  - SWELLING [None]
  - TREMOR [None]
